FAERS Safety Report 9547158 (Version 2)
Quarter: 2013Q4

REPORT INFORMATION
  Report Type: Spontaneous
  Country: AT (occurrence: AT)
  Receive Date: 20130924
  Receipt Date: 20131011
  Transmission Date: 20140711
  Serious: Yes (Death, Other)
  Sender: FDA-Public Use
  Company Number: AT-MERCK-1309AUT008587

PATIENT
  Age: 55 Year
  Sex: Female

DRUGS (3)
  1. VICTRELIS [Suspect]
     Dosage: UNK
     Route: 048
     Dates: start: 20110707
  2. PEGINTERFERON ALFA-2B [Suspect]
  3. RIBAVIRIN [Suspect]
     Route: 048

REACTIONS (6)
  - Sepsis [Fatal]
  - Oedema [Unknown]
  - Cardiac failure [Unknown]
  - Anaemia [Unknown]
  - Neutropenia [Unknown]
  - No therapeutic response [Unknown]
